FAERS Safety Report 5879279-5 (Version None)
Quarter: 2008Q3

REPORT INFORMATION
  Report Type: 
  Country: None (occurrence: None)
  Receive Date: 20080912
  Receipt Date: 20080903
  Transmission Date: 20090109
  Serious: Yes (Other)
  Sender: FDA-Public Use
  Company Number: US-BAYER-200832655NA

PATIENT
  Sex: Female

DRUGS (1)
  1. AVELOX [Suspect]
     Indication: DRUG USE FOR UNKNOWN INDICATION
     Dosage: TOTAL DAILY DOSE: 400 MG  UNIT DOSE: 400 MG

REACTIONS (9)
  - ANXIETY [None]
  - CHEST DISCOMFORT [None]
  - DIZZINESS [None]
  - DYSPNOEA [None]
  - HEART RATE INCREASED [None]
  - HYPOTENSION [None]
  - MEMORY IMPAIRMENT [None]
  - NAUSEA [None]
  - THINKING ABNORMAL [None]
